FAERS Safety Report 9629949 (Version 1)
Quarter: 2013Q4

REPORT INFORMATION
  Report Type: Report from Study
  Country: US (occurrence: US)
  Receive Date: 20131017
  Receipt Date: 20131017
  Transmission Date: 20140711
  Serious: Yes (Other)
  Sender: FDA-Public Use
  Company Number: US-ROCHE-1290358

PATIENT
  Age: 61 Year
  Sex: Female

DRUGS (3)
  1. ALTEPLASE [Suspect]
     Indication: ISCHAEMIC STROKE
     Route: 042
     Dates: start: 20120524
  2. EPTIFIBATIDE [Suspect]
     Indication: ISCHAEMIC STROKE
     Dosage: BOLUS
     Route: 065
     Dates: start: 20120524
  3. EPTIFIBATIDE [Suspect]
     Route: 065

REACTIONS (1)
  - Depressed level of consciousness [Recovered/Resolved]
